FAERS Safety Report 10007224 (Version 1)
Quarter: 2014Q1

REPORT INFORMATION
  Report Type: Spontaneous
  Country: US (occurrence: US)
  Receive Date: 20140313
  Receipt Date: 20140313
  Transmission Date: 20141002
  Serious: No
  Sender: FDA-Public Use
  Company Number: US-SHIRE-US201400167

PATIENT
  Sex: 0

DRUGS (5)
  1. LIALDA [Suspect]
     Indication: CROHN^S DISEASE
     Dosage: 2.4 G, 2X/DAY:BID
     Route: 048
     Dates: start: 20140205
  2. FISH OIL [Concomitant]
     Indication: PRODUCT USED FOR UNKNOWN INDICATION
     Dosage: UNK, 1X/DAY:QD
     Route: 048
     Dates: start: 2012
  3. TURMERIC                           /01079602/ [Concomitant]
     Indication: PRODUCT USED FOR UNKNOWN INDICATION
     Dosage: UNK, 2X/DAY:BID
     Route: 048
     Dates: start: 2012
  4. VITAMIN D                          /00107901/ [Concomitant]
     Indication: PRODUCT USED FOR UNKNOWN INDICATION
     Dosage: UNK, 1X/DAY:QD
     Route: 048
     Dates: start: 2012
  5. VITAMIN B12                        /00056201/ [Concomitant]
     Indication: ANAEMIA PROPHYLAXIS
     Dosage: UNK, OTHER (ONCE EVERY OTHER MONTH)
     Route: 030
     Dates: start: 2007

REACTIONS (3)
  - Nausea [Not Recovered/Not Resolved]
  - Drug prescribing error [Not Recovered/Not Resolved]
  - Off label use [Not Recovered/Not Resolved]
